FAERS Safety Report 8003452-3 (Version None)
Quarter: 2011Q4

REPORT INFORMATION
  Report Type: 
  Country: None (occurrence: None)
  Receive Date: 20111222
  Receipt Date: 20111222
  Transmission Date: 20120403
  Serious: No
  Sender: FDA-Public Use
  Company Number: None

PATIENT
  Age: 36 Year
  Sex: Male
  Weight: 90.718 kg

DRUGS (1)
  1. MEFLOQUINE HYDROCHLORIDE [Suspect]
     Dosage: 250 MG
     Dates: start: 19930401, end: 19930915

REACTIONS (6)
  - MIGRAINE [None]
  - NIGHTMARE [None]
  - ANXIETY [None]
  - BALANCE DISORDER [None]
  - SLEEP DISORDER [None]
  - DEPRESSION [None]
